FAERS Safety Report 17716603 (Version 2)
Quarter: 2020Q2

REPORT INFORMATION
  Report Type: Spontaneous
  Country: US (occurrence: US)
  Receive Date: 20200428
  Receipt Date: 20200519
  Transmission Date: 20200714
  Serious: Yes (Other)
  Sender: FDA-Public Use
  Company Number: US-009507513-2004USA007442

PATIENT
  Age: 30 Year
  Sex: Female

DRUGS (4)
  1. CUBICIN [Suspect]
     Active Substance: DAPTOMYCIN
     Indication: ABSCESS
     Dosage: 11 MG/KG/D
  2. CUBICIN [Suspect]
     Active Substance: DAPTOMYCIN
     Indication: BACTERAEMIA
     Dosage: 14 MG/KG/D
  3. INVANZ [Suspect]
     Active Substance: ERTAPENEM SODIUM
     Indication: BACTERAEMIA
  4. INVANZ [Suspect]
     Active Substance: ERTAPENEM SODIUM
     Indication: ABSCESS
     Dosage: 1 GRAM

REACTIONS (2)
  - Pathogen resistance [Not Recovered/Not Resolved]
  - Treatment failure [Not Recovered/Not Resolved]
